FAERS Safety Report 13898236 (Version 6)
Quarter: 2021Q4

REPORT INFORMATION
  Report Type: Report from Study
  Country: GT (occurrence: GT)
  Receive Date: 20170823
  Receipt Date: 20211026
  Transmission Date: 20220303
  Serious: Yes (Hospitalization, Other)
  Sender: FDA-Public Use
  Company Number: PHHY2015GT059834

PATIENT
  Age: 57 Year
  Sex: Female

DRUGS (8)
  1. GILENYA [Suspect]
     Active Substance: FINGOLIMOD HYDROCHLORIDE
     Indication: Secondary progressive multiple sclerosis
     Dosage: 0.5 MG, QD
     Route: 065
     Dates: start: 2002
  2. GILENYA [Suspect]
     Active Substance: FINGOLIMOD HYDROCHLORIDE
     Indication: Multiple sclerosis
     Dosage: 0.5 MG, QD
     Route: 048
     Dates: start: 20140903
  3. CLONAZEPAM [Concomitant]
     Active Substance: CLONAZEPAM
     Indication: Product used for unknown indication
     Dosage: 0.5 DF, QD
     Route: 065
  4. ETHINYL ESTRADIOL\NORETHINDRONE ACETATE [Concomitant]
     Active Substance: ETHINYL ESTRADIOL\NORETHINDRONE ACETATE
     Indication: Product used for unknown indication
     Dosage: UNK
     Route: 065
  5. THEOFIBRATE [Concomitant]
     Active Substance: THEOFIBRATE
     Indication: Blood cholesterol abnormal
     Dosage: 1 DF, QD
     Route: 065
  6. IBUPROFEN [Concomitant]
     Active Substance: IBUPROFEN
     Indication: Dysmenorrhoea
     Dosage: UNK
     Route: 065
  7. IBUPROFEN [Concomitant]
     Active Substance: IBUPROFEN
     Indication: Skin burning sensation
  8. LYRICA [Concomitant]
     Active Substance: PREGABALIN
     Indication: Product used for unknown indication
     Route: 048

REACTIONS (29)
  - Seizure [Unknown]
  - Feeling abnormal [Unknown]
  - Depression [Unknown]
  - Secondary progressive multiple sclerosis [Unknown]
  - Gait disturbance [Unknown]
  - Dizziness [Not Recovered/Not Resolved]
  - Vertigo [Not Recovered/Not Resolved]
  - Urinary incontinence [Unknown]
  - Anal incontinence [Unknown]
  - Urine output decreased [Unknown]
  - Joint stiffness [Unknown]
  - Asthenia [Unknown]
  - Malaise [Unknown]
  - Nausea [Unknown]
  - Depressed mood [Unknown]
  - Animal bite [Unknown]
  - Aphonia [Unknown]
  - Secretion discharge [Unknown]
  - Head discomfort [Unknown]
  - Tinnitus [Unknown]
  - Feeling drunk [Unknown]
  - Faeces soft [Unknown]
  - Alopecia [Unknown]
  - Vomiting [Unknown]
  - Discomfort [Unknown]
  - Tonsillitis [Unknown]
  - Dysphonia [Unknown]
  - Pyrexia [Unknown]
  - Cough [Unknown]

NARRATIVE: CASE EVENT DATE: 20150504
